FAERS Safety Report 10706339 (Version 1)
Quarter: 2015Q1

REPORT INFORMATION
  Report Type: Spontaneous
  Country: US (occurrence: US)
  Receive Date: 20150113
  Receipt Date: 20150113
  Transmission Date: 20150721
  Serious: Yes (Other)
  Sender: FDA-Public Use
  Company Number: US-RANBAXY-2014US-91514

PATIENT
  Age: 68 Year
  Sex: Male

DRUGS (3)
  1. CAFFEINE. [Suspect]
     Active Substance: CAFFEINE
     Indication: POST LUMBAR PUNCTURE SYNDROME
     Dosage: UNK
     Route: 065
  2. ASPIRIN. [Suspect]
     Active Substance: ASPIRIN
     Indication: POST LUMBAR PUNCTURE SYNDROME
     Dosage: UNK
     Route: 065
  3. ACETAMINOPHEN. [Suspect]
     Active Substance: ACETAMINOPHEN
     Indication: POST LUMBAR PUNCTURE SYNDROME
     Dosage: UNK
     Route: 065

REACTIONS (2)
  - Subdural haematoma [Recovered/Resolved]
  - Self-medication [Unknown]
